FAERS Safety Report 4471451-4 (Version None)
Quarter: 2004Q4

REPORT INFORMATION
  Report Type: 
  Country: None (occurrence: None)
  Receive Date: 20041007
  Receipt Date: 20041007
  Transmission Date: 20050328
  Serious: Yes (Hospitalization, Other)
  Sender: FDA-Public Use
  Company Number: None

PATIENT
  Age: 80 Year
  Sex: Female
  Weight: 72.5755 kg

DRUGS (1)
  1. ANBESOL [Suspect]
     Indication: LOCAL ANAESTHESIA
     Dosage: TOPICALLY
     Route: 061
     Dates: start: 20040523

REACTIONS (2)
  - ANGIONEUROTIC OEDEMA [None]
  - GINGIVAL PAIN [None]
